FAERS Safety Report 15480243 (Version 3)
Quarter: 2018Q4

REPORT INFORMATION
  Report Type: Spontaneous
  Country: US (occurrence: US)
  Receive Date: 20181009
  Receipt Date: 20181108
  Transmission Date: 20190205
  Serious: No
  Sender: FDA-Public Use
  Company Number: US-EX USA HOLDINGS-EXHL20180559

PATIENT
  Age: 63 Year
  Sex: Female

DRUGS (3)
  1. UNSPECIFIED MEDICATION [Concomitant]
     Active Substance: UNSPECIFIED INGREDIENT
     Indication: DYSPEPSIA
     Route: 065
  2. TYLENOL [Concomitant]
     Active Substance: ACETAMINOPHEN
     Indication: PRODUCT USED FOR UNKNOWN INDICATION
     Dosage: UNKNOWN
     Route: 065
  3. BENZNIDAZOLE. [Suspect]
     Active Substance: BENZNIDAZOLE
     Indication: AMERICAN TRYPANOSOMIASIS
     Dosage: 2 TABLETS
     Route: 048
     Dates: start: 20180828

REACTIONS (7)
  - Headache [Not Recovered/Not Resolved]
  - Product use issue [None]
  - Dyspepsia [Not Recovered/Not Resolved]
  - Chest pain [Not Recovered/Not Resolved]
  - Pruritus [Not Recovered/Not Resolved]
  - Neck pain [Unknown]
  - Eye pain [Unknown]

NARRATIVE: CASE EVENT DATE: 20180828
